FAERS Safety Report 9706692 (Version 3)
Quarter: 2015Q1

REPORT INFORMATION
  Report Type: Spontaneous
  Country: US (occurrence: US)
  Receive Date: 20131125
  Receipt Date: 20150310
  Transmission Date: 20150721
  Serious: Yes (Hospitalization)
  Sender: FDA-Public Use
  Company Number: US-BAYER-2013-141209

PATIENT
  Age: 28 Year
  Sex: Female
  Weight: 68.27 kg

DRUGS (5)
  1. ZITHROMAX [Concomitant]
     Active Substance: AZITHROMYCIN DIHYDRATE
     Indication: MASTITIS
     Dosage: AS DIRECTED
  2. TORADOL [Concomitant]
     Active Substance: KETOROLAC TROMETHAMINE
     Indication: ABSCESS DRAINAGE
     Dosage: 10 MG, EVERY 8 HOURS
     Route: 048
  3. MOTRIN [Concomitant]
     Active Substance: IBUPROFEN
     Indication: MASTITIS
     Dosage: 600 MG, TID AS NEEDED
     Route: 048
  4. MIRENA [Suspect]
     Active Substance: LEVONORGESTREL
     Indication: CONTRACEPTION
     Dosage: 20 MCG/24HR, CONT
     Route: 015
     Dates: start: 20071024, end: 20080221
  5. CLINDAMYCIN [Concomitant]
     Active Substance: CLINDAMYCIN\CLINDAMYCIN PHOSPHATE
     Indication: BREAST ABSCESS
     Dosage: 300 MG, TID
     Route: 048

REACTIONS (8)
  - Pelvic inflammatory disease [None]
  - Depression [None]
  - Sepsis [None]
  - Gastrointestinal infection [None]
  - Pyrexia [None]
  - Injury [None]
  - Uterine perforation [None]
  - Pain [None]

NARRATIVE: CASE EVENT DATE: 200710
